FAERS Safety Report 9704824 (Version 1)
Quarter: 2013Q4

REPORT INFORMATION
  Report Type: Spontaneous
  Country: US (occurrence: US)
  Receive Date: 20131122
  Receipt Date: 20131122
  Transmission Date: 20140711
  Serious: No
  Sender: FDA-Public Use
  Company Number: US-009507513-2012SP019058

PATIENT
  Age: 9 Year
  Sex: Female

DRUGS (1)
  1. LOTRIMIN ULTRA [Suspect]
     Dosage: UNK UNK, UNKNOWN
     Route: 061

REACTIONS (2)
  - Drug administered to patient of inappropriate age [Unknown]
  - Off label use [Unknown]
